FAERS Safety Report 6249629-9 (Version None)
Quarter: 2009Q2

REPORT INFORMATION
  Report Type: 
  Country: None (occurrence: None)
  Receive Date: 20090629
  Receipt Date: 20090623
  Transmission Date: 20091009
  Serious: Yes (Other)
  Sender: FDA-Public Use
  Company Number: VE-ELI_LILLY_AND_COMPANY-VE200905005515

PATIENT
  Age: 54 Year
  Sex: Male

DRUGS (2)
  1. BYETTA [Suspect]
     Indication: TYPE 2 DIABETES MELLITUS
     Dosage: 5 UG, 2/D
     Route: 058
     Dates: start: 20081001
  2. BYETTA [Suspect]
     Dosage: 10 UG, 2/D
     Route: 058
     Dates: end: 20090501

REACTIONS (4)
  - METASTASES TO CENTRAL NERVOUS SYSTEM [None]
  - METASTASES TO PERIPHERAL VASCULAR SYSTEM [None]
  - RENAL CELL CARCINOMA [None]
  - ROAD TRAFFIC ACCIDENT [None]
